FAERS Safety Report 7438071-0 (Version None)
Quarter: 2011Q2

REPORT INFORMATION
  Report Type: 
  Country: None (occurrence: None)
  Receive Date: 20110426
  Receipt Date: 20110425
  Transmission Date: 20111010
  Serious: Yes (Other)
  Sender: FDA-Public Use
  Company Number: BR-PFIZER INC-2011088779

PATIENT
  Age: 56 Year
  Sex: Female
  Weight: 90 kg

DRUGS (5)
  1. METFORMIN [Concomitant]
     Indication: DIABETES MELLITUS
     Dosage: UNK
  2. ALDORIL 15 [Concomitant]
     Indication: HYPERTENSION
     Dosage: UNK
  3. LIPITOR [Suspect]
     Indication: BLOOD CHOLESTEROL
  4. LOXAM [Concomitant]
     Dosage: UNK
  5. LIPITOR [Suspect]
     Indication: BLOOD TRIGLYCERIDES
     Dosage: 10 MG, 1X/DAY
     Route: 048
     Dates: start: 20110228

REACTIONS (4)
  - HYPERSENSITIVITY [None]
  - LIP DISORDER [None]
  - PRURITUS GENERALISED [None]
  - HEAD DISCOMFORT [None]
